FAERS Safety Report 10254528 (Version 1)
Quarter: 2014Q2

REPORT INFORMATION
  Report Type: Spontaneous
  Country: US (occurrence: US)
  Receive Date: 20140624
  Receipt Date: 20140624
  Transmission Date: 20141212
  Serious: No
  Sender: FDA-Public Use
  Company Number: US-B.I. PHARMACEUTICALS,INC./RIDGEFIELD-2014-BI-27408BP

PATIENT
  Age: 65 Year
  Sex: Male
  Weight: 30 kg

DRUGS (6)
  1. COMBIVENT [Suspect]
     Indication: EMPHYSEMA
     Dosage: STRENGTH: 20 MCG / 100 MCG; DAILY DOSE: 80 MCG/ 400 MCG
     Route: 055
     Dates: start: 201307, end: 201309
  2. COMBIVENT [Suspect]
     Dosage: STRENGTH: 20 MCG / 100 MCG; DAILY DOSE: 20 MCG/ 100 MCG
     Route: 055
     Dates: start: 201309
  3. PROAIR HFA [Concomitant]
     Indication: EMPHYSEMA
     Dosage: FORMULATION:INHALATION AEROSOL; STRENGTH: 1 TO 2 PUFFS
     Route: 055
     Dates: start: 201302
  4. SYMBICORT [Concomitant]
     Indication: EMPHYSEMA
     Dosage: FORMULATION:INHALATION AEROSOL; STRENGTH: 160/4.5; DAILY DOSE: 160/4.5
     Route: 055
     Dates: start: 2009
  5. ALBUTEROL [Concomitant]
     Indication: EMPHYSEMA
     Dosage: 216 MCG
     Route: 055
     Dates: start: 201302
  6. ALPHA 1 ANTITRYPSIN [Concomitant]
     Indication: ALPHA-1 ANTI-TRYPSIN DECREASED
     Dosage: 146.2857 MG
     Route: 042
     Dates: start: 2006

REACTIONS (3)
  - Nervousness [Not Recovered/Not Resolved]
  - Heart rate increased [Not Recovered/Not Resolved]
  - Feeling jittery [Not Recovered/Not Resolved]
